FAERS Safety Report 21284489 (Version 1)
Quarter: 2022Q3

REPORT INFORMATION
  Report Type: Report from Study
  Country: RU (occurrence: None)
  Receive Date: 20220902
  Receipt Date: 20220902
  Transmission Date: 20221026
  Serious: Yes (Other)
  Sender: FDA-Public Use
  Company Number: RU-ROCHE-3170344

PATIENT
  Age: 64 Year
  Sex: Female
  Weight: 65 kg

DRUGS (5)
  1. COBIMETINIB [Suspect]
     Active Substance: COBIMETINIB
     Indication: Malignant melanoma
     Dosage: START DATE OF MOST RECENT DOSE OF STUDY DRUG PRIOR TO AE AND SAE 29/AUG/2022?DOSE LAST STUDY DRUG AD
     Route: 048
     Dates: start: 20170511
  2. VEMURAFENIB [Suspect]
     Active Substance: VEMURAFENIB
     Indication: Malignant melanoma
     Dosage: DOSE LAST STUDY DRUG ADMIN PRIOR AE IS 2 TABLET?START DATE OF MOST RECENT DOSE OF STUDY DRUG PRIOR T
     Route: 048
     Dates: start: 20170511
  3. ATEZOLIZUMAB [Suspect]
     Active Substance: ATEZOLIZUMAB
     Indication: Malignant melanoma
     Dosage: DOSE CONCENTRATION 3.36 MG/ML?START DATE OF MOST RECENT DOSE OF STUDY DRUG PRIOR TO AE AND SAE ON 25
     Route: 041
     Dates: start: 20170608
  4. NIMESULIDUM [Concomitant]
     Dates: start: 2017
  5. AMLOTOP [Concomitant]
     Indication: Hypertension
     Route: 048
     Dates: start: 20210311

REACTIONS (1)
  - Breast cancer [Not Recovered/Not Resolved]

NARRATIVE: CASE EVENT DATE: 20220811
